FAERS Safety Report 5155972-7 (Version None)
Quarter: 2006Q4

REPORT INFORMATION
  Report Type: 
  Country: None (occurrence: None)
  Receive Date: 20061122
  Receipt Date: 20061023
  Transmission Date: 20070319
  Serious: Yes (Other)
  Sender: FDA-Public Use
  Company Number: BE-JNJFOC-20061005869

PATIENT
  Sex: Female
  Weight: 38.5 kg

DRUGS (6)
  1. RISPERDAL [Suspect]
     Indication: MUSCLE RIGIDITY
     Route: 048
  2. RISPERDAL [Suspect]
     Indication: FEAR
     Route: 048
  3. RISPERDAL [Suspect]
     Indication: AUTISM
     Route: 048
  4. SERTRALINE [Concomitant]
     Indication: DEPRESSION
     Route: 065
  5. SERTRALINE [Concomitant]
     Indication: OBSESSIVE-COMPULSIVE PERSONALITY DISORDER
     Route: 065
  6. SERTRALINE [Concomitant]
     Indication: FEAR
     Route: 065

REACTIONS (3)
  - AKATHISIA [None]
  - DYSKINESIA [None]
  - PSYCHOMOTOR HYPERACTIVITY [None]
